FAERS Safety Report 14188053 (Version 11)
Quarter: 2018Q2

REPORT INFORMATION
  Report Type: Spontaneous
  Country: FR (occurrence: FR)
  Receive Date: 20171114
  Receipt Date: 20180614
  Transmission Date: 20180711
  Serious: Yes (Life-Threatening, Disabling, Other)
  Sender: FDA-Public Use
  Company Number: FR-PFIZER INC-2017484185

PATIENT
  Age: 44 Year
  Sex: Male

DRUGS (13)
  1. CYTARABINE. [Suspect]
     Active Substance: CYTARABINE
     Indication: PERIPHERAL T-CELL LYMPHOMA UNSPECIFIED STAGE IV
     Dosage: UNK, CYCLIC (2 CYCLES OF DHAC)
  2. BENDAMUSTINE [Suspect]
     Active Substance: BENDAMUSTINE
     Indication: PERIPHERAL T-CELL LYMPHOMA UNSPECIFIED STAGE IV
     Dosage: UNK, CYCLIC (3 CYCLES)
  3. CYCLOPHOSPHAMIDE. [Suspect]
     Active Substance: CYCLOPHOSPHAMIDE
     Indication: PERIPHERAL T-CELL LYMPHOMA UNSPECIFIED STAGE IV
     Dosage: UNK, CYCLIC (4 CYCLES OF CHOEP)
  4. ETOPOSIDE. [Suspect]
     Active Substance: ETOPOSIDE
     Indication: PERIPHERAL T-CELL LYMPHOMA UNSPECIFIED STAGE IV
     Dosage: UNK, CYCLIC ( 4 CYCLES OF CHOEP PLUS ETOPOSIDE)
  5. DEXAMETHASONE. [Suspect]
     Active Substance: DEXAMETHASONE
     Indication: PERIPHERAL T-CELL LYMPHOMA UNSPECIFIED STAGE IV
     Dosage: UNK, CYCLIC (2 CYCLES OF DHAC)
  6. PREDNISONE. [Suspect]
     Active Substance: PREDNISONE
     Dosage: UNK UNK, CYCLIC (1 CYCLE OF CEP)
  7. ADCETRIS [Suspect]
     Active Substance: BRENTUXIMAB VEDOTIN
     Indication: PERIPHERAL T-CELL LYMPHOMA UNSPECIFIED STAGE IV
     Dosage: UNK, CYCLIC (4 CYCLES)
     Route: 042
     Dates: start: 20150416
  8. CARBOPLATIN. [Suspect]
     Active Substance: CARBOPLATIN
     Indication: PERIPHERAL T-CELL LYMPHOMA UNSPECIFIED STAGE IV
     Dosage: UNK, CYCLIC (2 CYCLES OF DHAC)
  9. PREDNISONE. [Suspect]
     Active Substance: PREDNISONE
     Indication: PERIPHERAL T-CELL LYMPHOMA UNSPECIFIED STAGE IV
     Dosage: UNK UNK, CYCLIC (4 CYCLES OF CHOEP)
  10. VINCRISTINE SULFATE. [Suspect]
     Active Substance: VINCRISTINE SULFATE
     Indication: PERIPHERAL T-CELL LYMPHOMA UNSPECIFIED STAGE IV
     Dosage: UNK, CYCLIC (4 CYCLES OF CHOEP)
  11. DOXORUBICIN HCL [Suspect]
     Active Substance: DOXORUBICIN HYDROCHLORIDE
     Indication: PERIPHERAL T-CELL LYMPHOMA UNSPECIFIED STAGE IV
     Dosage: UNK, CYCLIC (4 CYCLES OF CHOEP)
  12. CYCLOPHOSPHAMIDE. [Suspect]
     Active Substance: CYCLOPHOSPHAMIDE
     Dosage: UNK, CYCLIC (1 CYCLE OF CEP)
  13. ETOPOSIDE. [Suspect]
     Active Substance: ETOPOSIDE
     Dosage: UNK, CYCLIC (1 CYCLE OF CEP)

REACTIONS (2)
  - Cytomegalovirus chorioretinitis [Not Recovered/Not Resolved]
  - Blindness [Unknown]
